FAERS Safety Report 5463009-5 (Version None)
Quarter: 2007Q3

REPORT INFORMATION
  Report Type: 
  Country: None (occurrence: None)
  Receive Date: 20070920
  Receipt Date: 20070906
  Transmission Date: 20080115
  Serious: Yes (Other)
  Sender: FDA-Public Use
  Company Number: AU-AMGEN-US242099

PATIENT
  Sex: Male

DRUGS (18)
  1. CINACALCET [Suspect]
     Indication: HYPERPARATHYROIDISM SECONDARY
     Route: 048
     Dates: start: 20070223, end: 20070904
  2. ARANESP [Suspect]
     Indication: DIALYSIS
     Route: 058
     Dates: start: 20030506, end: 20040205
  3. ARANESP [Suspect]
     Route: 042
     Dates: start: 20070720
  4. ASPIRIN [Concomitant]
     Route: 065
  5. CALTRATE [Concomitant]
     Route: 065
  6. FOLIC ACID [Concomitant]
     Route: 065
  7. ATORVASTATIN CALCIUM [Concomitant]
     Route: 065
  8. OMEPRAZOLE [Concomitant]
     Route: 065
  9. MELOXICAM [Concomitant]
     Route: 065
  10. RESONIUM [Concomitant]
     Route: 065
  11. SERETIDE [Concomitant]
     Route: 065
  12. SINEMET [Concomitant]
     Route: 065
  13. VITAMIN CAP [Concomitant]
     Route: 065
  14. B-COMBIN FORTE TABLET [Concomitant]
     Route: 065
  15. ZINC [Concomitant]
     Route: 065
  16. FERRUM H [Concomitant]
     Route: 065
  17. FERROGRADUMET [Concomitant]
     Route: 065
  18. QUININE [Concomitant]
     Route: 065

REACTIONS (1)
  - THROMBOCYTOPENIA [None]
